FAERS Safety Report 18348180 (Version 1)
Quarter: 2020Q4

REPORT INFORMATION
  Report Type: Spontaneous
  Country: US (occurrence: US)
  Receive Date: 20201005
  Receipt Date: 20201005
  Transmission Date: 20210114
  Serious: Yes (Hospitalization)
  Sender: FDA-Public Use
  Company Number: None

PATIENT
  Sex: Female

DRUGS (15)
  1. HUMIRA [Suspect]
     Active Substance: ADALIMUMAB
     Indication: HIDRADENITIS
     Route: 058
     Dates: start: 20200125
  2. AZITHROMYCIN ANHYDROUS. [Concomitant]
     Active Substance: AZITHROMYCIN ANHYDROUS
  3. CLINDAMYCIN. [Concomitant]
     Active Substance: CLINDAMYCIN
  4. HYDROCO/APAP [Concomitant]
     Active Substance: ACETAMINOPHEN\HYDROCODONE
  5. RIFAMPIN. [Concomitant]
     Active Substance: RIFAMPIN
  6. ARIPIPRAZOLE. [Concomitant]
     Active Substance: ARIPIPRAZOLE
  7. DOXYCYCL HYC [Concomitant]
  8. MUPIROCIN. [Concomitant]
     Active Substance: MUPIROCIN
  9. SERTRALINE [Concomitant]
     Active Substance: SERTRALINE HYDROCHLORIDE
  10. PREDNISONE. [Concomitant]
     Active Substance: PREDNISONE
  11. SPIRONOLACT [Concomitant]
     Active Substance: SPIRONOLACTONE
  12. FLOVENT HFA [Concomitant]
     Active Substance: FLUTICASONE PROPIONATE
  13. HYDROXYZ HCL [Concomitant]
     Active Substance: HYDROXYZINE HYDROCHLORIDE
  14. METFORMIN [Concomitant]
     Active Substance: METFORMIN HYDROCHLORIDE
  15. PROPRANOLOL [Concomitant]
     Active Substance: PROPRANOLOL HYDROCHLORIDE

REACTIONS (5)
  - Condition aggravated [None]
  - Headache [None]
  - Pyrexia [None]
  - Infection [None]
  - Nausea [None]
